FAERS Safety Report 24107288 (Version 2)
Quarter: 2025Q4

REPORT INFORMATION
  Report Type: Spontaneous
  Country: AR (occurrence: AR)
  Receive Date: 20240718
  Receipt Date: 20251110
  Transmission Date: 20260119
  Serious: Yes (Other)
  Sender: SANDOZ
  Company Number: AR-002147023-NVSC2023AR145386

PATIENT
  Age: 68 Year
  Sex: Female

DRUGS (2)
  1. ALENDRONATE SODIUM [Suspect]
     Active Substance: ALENDRONATE SODIUM
     Indication: Breast cancer
     Dosage: UNK
     Route: 048
  2. ZOLEDRONIC ACID [Suspect]
     Active Substance: ZOLEDRONIC ACID
     Indication: Breast cancer
     Dosage: UNK
     Route: 042

REACTIONS (7)
  - Orocutaneous fistula [Recovered/Resolved]
  - Oral pustule [Recovered/Resolved]
  - Oral pain [Recovered/Resolved]
  - Oropharyngeal plaque [Recovered/Resolved]
  - Breath odour [Recovered/Resolved]
  - Osteonecrosis of jaw [Recovered/Resolved]
  - Mouth ulceration [Recovered/Resolved]
